FAERS Safety Report 14191422 (Version 8)
Quarter: 2019Q4

REPORT INFORMATION
  Report Type: Report from Study
  Country: None (occurrence: US)
  Receive Date: 20171115
  Receipt Date: 20191025
  Transmission Date: 20200122
  Serious: Yes (Other)
  Sender: FDA-Public Use
  Company Number: US-ABBVIE-17K-163-2159815-00

PATIENT
  Sex: Female

DRUGS (14)
  1. HUMIRA [Suspect]
     Active Substance: ADALIMUMAB
     Indication: ANKYLOSING SPONDYLITIS
     Route: 058
     Dates: start: 201303
  2. PRAVASTATIN SODIUM. [Concomitant]
     Active Substance: PRAVASTATIN SODIUM
     Indication: PRODUCT USED FOR UNKNOWN INDICATION
  3. COZAAR [Concomitant]
     Active Substance: LOSARTAN POTASSIUM
     Indication: PRODUCT USED FOR UNKNOWN INDICATION
  4. JANUVIA [Concomitant]
     Active Substance: SITAGLIPTIN PHOSPHATE
     Indication: PRODUCT USED FOR UNKNOWN INDICATION
  5. METFORMIN HYDROCHLORIDE. [Concomitant]
     Active Substance: METFORMIN HYDROCHLORIDE
     Indication: PRODUCT USED FOR UNKNOWN INDICATION
  6. VITAMIN E [Concomitant]
     Active Substance: .ALPHA.-TOCOPHEROL
     Indication: PRODUCT USED FOR UNKNOWN INDICATION
  7. FISH OIL [Concomitant]
     Active Substance: FISH OIL
     Indication: NUTRITIONAL SUPPLEMENTATION
  8. ASPIRIN. [Concomitant]
     Active Substance: ASPIRIN
     Indication: ANTICOAGULANT THERAPY
  9. METFORMIN [Concomitant]
     Active Substance: METFORMIN HYDROCHLORIDE
     Indication: DIABETES MELLITUS
  10. ULORIC [Concomitant]
     Active Substance: FEBUXOSTAT
     Indication: PRODUCT USED FOR UNKNOWN INDICATION
  11. HUMIRA [Suspect]
     Active Substance: ADALIMUMAB
     Indication: RHEUMATOID ARTHRITIS
  12. ATORVASTATIN [Concomitant]
     Active Substance: ATORVASTATIN
     Indication: BLOOD CHOLESTEROL INCREASED
  13. COENZYME Q10 [Concomitant]
     Active Substance: UBIDECARENONE
     Indication: ENZYME SUPPLEMENTATION
  14. COQ10 SOFTGEL [Concomitant]
     Indication: PRODUCT USED FOR UNKNOWN INDICATION

REACTIONS (25)
  - Burning sensation [Unknown]
  - Injection site papule [Recovered/Resolved]
  - Osteoarthritis [Unknown]
  - Poor peripheral circulation [Not Recovered/Not Resolved]
  - Balance disorder [Unknown]
  - Cataract [Unknown]
  - Peripheral venous disease [Not Recovered/Not Resolved]
  - Eczema [Unknown]
  - Pain in extremity [Unknown]
  - Psoriasis [Recovered/Resolved with Sequelae]
  - Rash macular [Not Recovered/Not Resolved]
  - Gait disturbance [Unknown]
  - Tendon injury [Recovering/Resolving]
  - Large intestine polyp [Unknown]
  - Uveitis [Recovering/Resolving]
  - Retinal detachment [Unknown]
  - Hypoaesthesia [Unknown]
  - Paraesthesia [Unknown]
  - Ankylosing spondylitis [Unknown]
  - Spinal fusion acquired [Unknown]
  - Rheumatoid nodule [Unknown]
  - Iritis [Unknown]
  - Abdominal distension [Unknown]
  - Rheumatoid arthritis [Recovering/Resolving]
  - Helicobacter infection [Unknown]

NARRATIVE: CASE EVENT DATE: 2014
